FAERS Safety Report 19800901 (Version 1)
Quarter: 2021Q3

REPORT INFORMATION
  Report Type: Spontaneous
  Country: US (occurrence: US)
  Receive Date: 20210908
  Receipt Date: 20210908
  Transmission Date: 20211014
  Serious: Yes (Hospitalization, Other)
  Sender: FDA-Public Use
  Company Number: US-SA-2021SA295457

PATIENT
  Sex: Male
  Weight: 101 kg

DRUGS (2)
  1. TAMSULOSINA [Suspect]
     Active Substance: TAMSULOSIN HYDROCHLORIDE
     Indication: PRODUCT USED FOR UNKNOWN INDICATION
     Dosage: UNK
  2. ENZALUTAMIDE [Suspect]
     Active Substance: ENZALUTAMIDE
     Indication: PROSTATE CANCER
     Dosage: 160 MG, ONCE DAILY#2 JUNK UNK, UNKNOWN FREQ.
     Route: 048

REACTIONS (5)
  - Large intestinal haemorrhage [Unknown]
  - Dehydration [Unknown]
  - Loss of consciousness [Unknown]
  - Fall [Unknown]
  - Blood pressure decreased [Unknown]
